FAERS Safety Report 16816446 (Version 1)
Quarter: 2019Q3

REPORT INFORMATION
  Report Type: Spontaneous
  Country: DE (occurrence: DE)
  Receive Date: 20190917
  Receipt Date: 20190917
  Transmission Date: 20191005
  Serious: Yes (Other)
  Sender: FDA-Public Use
  Company Number: DE-MALLINCKRODT-T201906326

PATIENT
  Sex: Male

DRUGS (1)
  1. UVADEX [Suspect]
     Active Substance: METHOXSALEN
     Indication: PRODUCT USED FOR UNKNOWN INDICATION
     Dosage: UNK, EXTRACORPOREAL
     Route: 050

REACTIONS (1)
  - Posterior reversible encephalopathy syndrome [Recovered/Resolved]
